FAERS Safety Report 6885154-X (Version None)
Quarter: 2010Q3

REPORT INFORMATION
  Report Type: 
  Country: None (occurrence: None)
  Receive Date: 20100729
  Receipt Date: 20080307
  Transmission Date: 20110219
  Serious: Yes (Other)
  Sender: FDA-Public Use
  Company Number: US-PFIZER INC-2007105963

PATIENT
  Sex: Female
  Weight: 85 kg

DRUGS (11)
  1. CELEBREX [Suspect]
     Dates: start: 20071001, end: 20071213
  2. LEVOTHROID [Concomitant]
  3. AMITRIPTYLINE HYDROCHLORIDE [Concomitant]
  4. ATENOLOL [Concomitant]
  5. VYTORIN [Concomitant]
  6. OMEPRAZOLE [Concomitant]
  7. VITAMIN D [Concomitant]
  8. CALCIUM [Concomitant]
  9. CITRUCEL [Concomitant]
  10. VITAMIN B [Concomitant]
  11. NORCO [Concomitant]

REACTIONS (2)
  - ABDOMINAL PAIN UPPER [None]
  - HAEMATEMESIS [None]
